FAERS Safety Report 7247218-0 (Version None)
Quarter: 2011Q1

REPORT INFORMATION
  Report Type: 
  Country: None (occurrence: None)
  Receive Date: 20110127
  Receipt Date: 20110119
  Transmission Date: 20110831
  Serious: Yes (Death, Other)
  Sender: FDA-Public Use
  Company Number: DE-GENZYME-FLUD-1000656

PATIENT
  Age: 19 Year
  Sex: Male

DRUGS (15)
  1. CAMPATH [Suspect]
     Dosage: UNK
     Route: 042
  2. MELPHALAN [Suspect]
     Indication: BONE MARROW CONDITIONING REGIMEN
     Dosage: UNK
     Route: 065
  3. FLUDARA [Suspect]
     Indication: STEM CELL TRANSPLANT
  4. METHOTREXATE [Concomitant]
     Indication: PROPHYLAXIS AGAINST GRAFT VERSUS HOST DISEASE
     Dosage: UNK
     Route: 065
  5. FLUDARA [Suspect]
     Indication: BONE MARROW CONDITIONING REGIMEN
     Dosage: UNK
     Route: 065
  6. CAMPATH [Suspect]
     Dosage: 10 MG, UNK
     Route: 042
  7. MYCOPHENOLATE MOFETIL [Concomitant]
     Indication: PROPHYLAXIS AGAINST GRAFT VERSUS HOST DISEASE
     Dosage: UNK
     Route: 065
  8. CAMPATH [Suspect]
     Indication: GRAFT VERSUS HOST DISEASE
     Dosage: 3 MG, UNK
     Route: 042
  9. ANTITHYMOCYTE IMMUNOGLOBULIN [Concomitant]
     Indication: PROPHYLAXIS AGAINST GRAFT VERSUS HOST DISEASE
     Dosage: UNK
     Route: 065
  10. CAMPATH [Suspect]
     Dosage: 30 MG, UNK
     Route: 042
  11. FLUCONAZOLE [Concomitant]
     Indication: INFECTION PROPHYLAXIS
     Dosage: UNK
     Route: 065
  12. ACYCLOVIR [Concomitant]
     Indication: INFECTION PROPHYLAXIS
     Dosage: UNK
     Route: 065
  13. MELPHALAN [Suspect]
     Indication: STEM CELL TRANSPLANT
  14. CYCLOSPORINE [Concomitant]
     Indication: PROPHYLAXIS AGAINST GRAFT VERSUS HOST DISEASE
     Dosage: 3 MG/KG, QD
     Route: 065
  15. SULFAMETHOXAZOLE W [Concomitant]
     Indication: INFECTION PROPHYLAXIS
     Dosage: UNK
     Route: 065

REACTIONS (6)
  - CANDIDIASIS [None]
  - DEATH [None]
  - EPSTEIN-BARR VIRUS INFECTION [None]
  - GRAFT VERSUS HOST DISEASE [None]
  - ORAL HERPES [None]
  - ADENOVIRUS INFECTION [None]
